FAERS Safety Report 17215026 (Version 1)
Quarter: 2019Q4

REPORT INFORMATION
  Report Type: Spontaneous
  Country: US (occurrence: US)
  Receive Date: 20191206
  Receipt Date: 20191206
  Transmission Date: 20200122
  Serious: Yes (Hospitalization)
  Sender: FDA-Public Use
  Company Number: None

PATIENT
  Sex: Female
  Weight: 33 kg

DRUGS (2)
  1. ETOPOSIDE (VP-16) [Suspect]
     Active Substance: ETOPOSIDE
  2. DECARBAZINE [Concomitant]

REACTIONS (4)
  - Cough [None]
  - Throat irritation [None]
  - Infusion related reaction [None]
  - Periorbital oedema [None]

NARRATIVE: CASE EVENT DATE: 20191205
